FAERS Safety Report 6389311-0 (Version None)
Quarter: 2009Q4

REPORT INFORMATION
  Report Type: 
  Country: None (occurrence: None)
  Receive Date: 20091005
  Receipt Date: 20091005
  Transmission Date: 20100525
  Serious: Yes (Life-Threatening)
  Sender: FDA-Public Use
  Company Number: None

PATIENT
  Sex: Male

DRUGS (2)
  1. TRALI [Suspect]
     Indication: MYELODYSPLASTIC SYNDROME
     Dosage: PLATELETS PHERESIS LR. IRR 2 UNITS
     Dates: start: 20090901, end: 20090901
  2. TRALI [Suspect]

REACTIONS (1)
  - TRANSFUSION-RELATED ACUTE LUNG INJURY [None]
